FAERS Safety Report 23409531 (Version 1)
Quarter: 2024Q1

REPORT INFORMATION
  Report Type: Spontaneous
  Country: EG (occurrence: EG)
  Receive Date: 20240117
  Receipt Date: 20240117
  Transmission Date: 20240410
  Serious: Yes (Hospitalization)
  Sender: FDA-Public Use
  Company Number: EG-ELI_LILLY_AND_COMPANY-EG202312010232

PATIENT
  Age: 46 Year
  Sex: Male

DRUGS (3)
  1. VERZENIO [Suspect]
     Active Substance: ABEMACICLIB
     Indication: Bone cancer metastatic
     Dosage: 200 MG, BID
     Route: 048
  2. VERZENIO [Suspect]
     Active Substance: ABEMACICLIB
     Indication: Metastatic lymphoma
     Dosage: 150 MG, UNKNOWN
     Route: 048
  3. VERZENIO [Suspect]
     Active Substance: ABEMACICLIB
     Indication: Lung cancer metastatic

REACTIONS (7)
  - Seizure [Recovering/Resolving]
  - Blood potassium decreased [Recovering/Resolving]
  - Blood sodium decreased [Recovering/Resolving]
  - Hallucination [Recovering/Resolving]
  - Malnutrition [Recovering/Resolving]
  - Psychomotor hyperactivity [Recovering/Resolving]
  - Off label use [Not Recovered/Not Resolved]

NARRATIVE: CASE EVENT DATE: 20231201
